FAERS Safety Report 25920598 (Version 1)
Quarter: 2025Q4

REPORT INFORMATION
  Report Type: Spontaneous
  Country: US (occurrence: US)
  Receive Date: 20251014
  Receipt Date: 20251014
  Transmission Date: 20260118
  Serious: No
  Sender: FENNEC PHARMACEUTICALS
  Company Number: US-FENNEC PHARMACEUTICALS, INC.-2025FEN00077

PATIENT

DRUGS (1)
  1. PEDMARK [Suspect]
     Active Substance: SODIUM THIOSULFATE
     Route: 042

REACTIONS (2)
  - Nausea [Unknown]
  - Vomiting [Unknown]
